FAERS Safety Report 7348107-3 (Version None)
Quarter: 2011Q1

REPORT INFORMATION
  Report Type: 
  Country: None (occurrence: None)
  Receive Date: 20110311
  Receipt Date: 20110212
  Transmission Date: 20110831
  Serious: No
  Sender: FDA-Public Use
  Company Number: US-B.I. PHARMACEUTICALS,INC./RIDGEFIELD-2011-BP-04111BP

PATIENT
  Sex: Male

DRUGS (2)
  1. PRADAXA [Suspect]
  2. LIPITOR [Suspect]

REACTIONS (5)
  - NAUSEA [None]
  - PRURITUS [None]
  - DIZZINESS [None]
  - HEADACHE [None]
  - DECREASED APPETITE [None]
